FAERS Safety Report 22350281 (Version 1)
Quarter: 2023Q2

REPORT INFORMATION
  Report Type: Spontaneous
  Country: US (occurrence: US)
  Receive Date: 20230522
  Receipt Date: 20230522
  Transmission Date: 20230722
  Serious: No
  Sender: FDA-Public Use
  Company Number: US-BAYER-2023A064417

PATIENT
  Age: 61 Year
  Sex: Female

DRUGS (1)
  1. CIPRO [Suspect]
     Active Substance: CIPROFLOXACIN HYDROCHLORIDE
     Indication: Urinary tract infection
     Dosage: 500 MG, BID
     Route: 048
     Dates: start: 20230504, end: 20230506

REACTIONS (3)
  - Hypoaesthesia [Not Recovered/Not Resolved]
  - Paraesthesia [Not Recovered/Not Resolved]
  - Muscular weakness [Not Recovered/Not Resolved]

NARRATIVE: CASE EVENT DATE: 20230506
